FAERS Safety Report 11867870 (Version 1)
Quarter: 2015Q4

REPORT INFORMATION
  Report Type: Spontaneous
  Country: US (occurrence: None)
  Receive Date: 20151223
  Receipt Date: 20151223
  Transmission Date: 20160305
  Serious: Yes (Other)
  Sender: FDA-Public Use
  Company Number: None

PATIENT
  Age: 60 Year
  Sex: Female

DRUGS (1)
  1. POTASSIUM CHLORIDE ER TABS 8MEQ MYLAN [Suspect]
     Active Substance: POTASSIUM CHLORIDE
     Indication: HYPERTENSION
     Route: 048
     Dates: start: 20150903, end: 20151203

REACTIONS (3)
  - Muscle spasms [None]
  - Medication residue present [None]
  - Product quality issue [None]

NARRATIVE: CASE EVENT DATE: 20151015
